FAERS Safety Report 12620364 (Version 1)
Quarter: 2016Q3

REPORT INFORMATION
  Report Type: Spontaneous
  Country: GR (occurrence: GR)
  Receive Date: 20160803
  Receipt Date: 20160803
  Transmission Date: 20161109
  Serious: Yes (Other)
  Sender: FDA-Public Use
  Company Number: GR-BAXTER-2016BAX040776

PATIENT
  Sex: Female

DRUGS (15)
  1. EPIRUBICIN HCL [Suspect]
     Active Substance: EPIRUBICIN HYDROCHLORIDE
     Indication: BREAST CANCER
     Dosage: REGIMEN#1, FEC 100 X4, ADJUVANT SETTING
     Route: 065
  2. FLUOROURACIL. [Suspect]
     Active Substance: FLUOROURACIL
     Indication: BREAST CANCER
     Dosage: REGIMEN #1, FEC 100 X4, ADJUVANT SETTING
     Route: 065
  3. EXEMESTANE. [Suspect]
     Active Substance: EXEMESTANE
     Indication: BREAST CANCER
     Dosage: REGIMEN #1, METASTATIC SETTING (3RD LINE)
     Route: 065
  4. DOCETAXEL. [Suspect]
     Active Substance: DOCETAXEL
     Indication: BREAST CANCER
     Dosage: X4M, REGIMEN #1, ADJUVANT SETTING
     Route: 065
  5. PACLITAXEL. [Suspect]
     Active Substance: PACLITAXEL
     Indication: BREAST CANCER
     Dosage: REGIMEN #1, METASTATIC SETTING (1ST LINE)
     Route: 065
  6. LEUPRORELIN [Suspect]
     Active Substance: LEUPROLIDE ACETATE
     Dosage: REGIMEN #1 (METASTATIC SETTING: 2ND LINE)
     Route: 065
  7. LETROZOLE. [Suspect]
     Active Substance: LETROZOLE
     Indication: BREAST CANCER
     Dosage: REGIMEN #1, METASTATIC SETTING (2ND LINE)
     Route: 065
  8. ZOLEDRONIC ACID [Suspect]
     Active Substance: ZOLEDRONIC ACID
     Dosage: REGIMEN #1 (METASTATIC SETTING: 4TH LINE)
     Route: 065
  9. CAPECITABINE. [Suspect]
     Active Substance: CAPECITABINE
     Indication: BREAST CANCER
     Dosage: REGIMEN #1, METASTATIC SETTING (4TH LINE)
     Route: 065
  10. ENDOXAN 1000 MG - POWDER FOR SOLUTION FOR INJECTION [Suspect]
     Active Substance: CYCLOPHOSPHAMIDE
     Indication: BREAST CANCER
     Dosage: REGIMEN #1 (FEC 100 X4), ADJUVANT SETTING
     Route: 065
  11. TAMOXIFEN CITRATE. [Suspect]
     Active Substance: TAMOXIFEN CITRATE
     Indication: BREAST CANCER
     Dosage: REGIMEN#1, ADJUVANT SETTING
     Route: 065
  12. LEUPRORELIN [Suspect]
     Active Substance: LEUPROLIDE ACETATE
     Indication: BREAST CANCER
     Dosage: REGIMEN #1, ADJUVANT SETTING
     Route: 065
  13. BEVACIZUMAB [Suspect]
     Active Substance: BEVACIZUMAB
     Indication: BREAST CANCER
     Dosage: REGIMEN #1, METASTATIC SETTING (1ST LINE)
     Route: 065
  14. ZOLEDRONIC ACID [Suspect]
     Active Substance: ZOLEDRONIC ACID
     Indication: BREAST CANCER
     Dosage: REGIMEN #1 (METASTATIC SETTING: 2ND LINE)
     Route: 065
  15. EVEROLIMUS [Suspect]
     Active Substance: EVEROLIMUS
     Indication: BREAST CANCER
     Dosage: REGIMEN #1, METASTATIC SETTING (3RD LINE)
     Route: 065

REACTIONS (1)
  - Breast cancer metastatic [Unknown]
